FAERS Safety Report 5128211-0 (Version None)
Quarter: 2006Q4

REPORT INFORMATION
  Report Type: 
  Country: None (occurrence: None)
  Receive Date: 20061011
  Receipt Date: 20061004
  Transmission Date: 20070319
  Serious: Yes (Death)
  Sender: FDA-Public Use
  Company Number: 2006121284

PATIENT
  Age: 79 Year
  Sex: Female
  Weight: 45 kg

DRUGS (8)
  1. ZYVOX [Suspect]
     Indication: ENTEROCOCCAL INFECTION
     Dosage: 1200 MG (600 MG, 2 IN 1 D), INTRAVENOUS
     Route: 042
     Dates: start: 20051114, end: 20051116
  2. VANCOMYCIN [Concomitant]
  3. CIPROFLOXACIN HYDROCHLORIDE (CIPROFLOXACIN HYDROCHLORIDE) [Concomitant]
  4. CLINDAMYCIN HYDROCHLORIDE [Concomitant]
  5. VFEND [Concomitant]
  6. MEROPENEM TRIHYDRATE (MEROPENEM TRIHYDRATE) [Concomitant]
  7. DIGOXIN [Concomitant]
  8. LASIX [Concomitant]

REACTIONS (4)
  - LIVER DISORDER [None]
  - MULTI-ORGAN FAILURE [None]
  - PANCYTOPENIA [None]
  - RENAL DISORDER [None]
